FAERS Safety Report 5476959-0 (Version None)
Quarter: 2007Q3

REPORT INFORMATION
  Report Type: 
  Country: None (occurrence: None)
  Receive Date: 20070831
  Receipt Date: 20070615
  Transmission Date: 20080115
  Serious: Yes (Hospitalization)
  Sender: FDA-Public Use
  Company Number: PHEH2007US07445

PATIENT
  Age: 29 Year
  Sex: Female

DRUGS (2)
  1. EXJADE [Suspect]
     Indication: HAEMOLYTIC ANAEMIA
     Dosage: 100 MG, QD, ORAL 1500 MG, QD, ORAL
     Route: 048
     Dates: start: 20070130, end: 20070506
  2. EXJADE [Suspect]
     Indication: HAEMOLYTIC ANAEMIA
     Dosage: 100 MG, QD, ORAL 1500 MG, QD, ORAL
     Route: 048
     Dates: start: 20070507

REACTIONS (5)
  - BODY TEMPERATURE INCREASED [None]
  - DIARRHOEA [None]
  - HEADACHE [None]
  - PAIN [None]
  - SINUSITIS [None]
